FAERS Safety Report 21753191 (Version 1)
Quarter: 2022Q4

REPORT INFORMATION
  Report Type: Report from Study
  Country: US (occurrence: US)
  Receive Date: 20221220
  Receipt Date: 20221220
  Transmission Date: 20230113
  Serious: No
  Sender: FDA-Public Use
  Company Number: US-002147023-NVSC2022US293024

PATIENT
  Sex: Female
  Weight: 93.44 kg

DRUGS (1)
  1. COSENTYX [Suspect]
     Active Substance: SECUKINUMAB
     Indication: Psoriasis
     Dosage: 300 MG, QMO (TWO 150MG/ML SYRINGES SUBCUTANEOUS EVERY MONTH)
     Route: 058
     Dates: start: 202205

REACTIONS (1)
  - Furuncle [Unknown]
